FAERS Safety Report 8297055-3 (Version None)
Quarter: 2012Q2

REPORT INFORMATION
  Report Type: 
  Country: None (occurrence: None)
  Receive Date: 20120417
  Receipt Date: 20120417
  Transmission Date: 20120825
  Serious: Yes (Other)
  Sender: FDA-Public Use
  Company Number: None

PATIENT
  Sex: Female

DRUGS (1)
  1. BOTOX [Suspect]
     Indication: BLEPHAROSPASM
     Dosage: INTRADERMAL  INJECTABLE EVERY 3 MONTHS
     Route: 023
     Dates: end: 20110607

REACTIONS (2)
  - EYE PAIN [None]
  - INJECTION SITE PAIN [None]
